FAERS Safety Report 4642733-8 (Version None)
Quarter: 2005Q2

REPORT INFORMATION
  Report Type: 
  Country: None (occurrence: None)
  Receive Date: 20050420
  Receipt Date: 20050408
  Transmission Date: 20051028
  Serious: Yes (Hospitalization)
  Sender: FDA-Public Use
  Company Number: 2005UW05514

PATIENT
  Age: 62 Year
  Sex: Female

DRUGS (11)
  1. ARIMIDEX [Suspect]
     Indication: BREAST CANCER METASTATIC
     Dosage: 1 MG QD PO
     Route: 048
     Dates: start: 20050315, end: 20050324
  2. BLINDED LONAFARNIB STUDY CAPSULES [Suspect]
     Indication: BREAST CANCER METASTATIC
     Dosage: 200 MG BID PO
     Route: 048
     Dates: start: 20050314, end: 20050324
  3. ENALAPRIL [Concomitant]
  4. OMEPRAZOLE [Concomitant]
  5. SANGOBION [Concomitant]
  6. AMITRIPTYLINE HCL TAB [Concomitant]
  7. NAPROXEN [Concomitant]
  8. VALPROATE SODIUM [Concomitant]
  9. THIAMINE HCL [Concomitant]
  10. VITAMIN B6 [Concomitant]
  11. VITAMIN B-12 [Concomitant]

REACTIONS (3)
  - DRUG ERUPTION [None]
  - PYREXIA [None]
  - SEPSIS [None]
